FAERS Safety Report 6477446-3 (Version None)
Quarter: 2009Q4

REPORT INFORMATION
  Report Type: 
  Country: None (occurrence: None)
  Receive Date: 20091207
  Receipt Date: 20091119
  Transmission Date: 20100525
  Serious: Yes (Other)
  Sender: FDA-Public Use
  Company Number: JP-SANOFI-AVENTIS-2009SA000836

PATIENT
  Age: 81 Year
  Sex: Male

DRUGS (9)
  1. AMARYL [Suspect]
     Indication: TYPE 2 DIABETES MELLITUS
     Route: 048
     Dates: start: 20080930, end: 20091029
  2. ORAL BLOOD GLUCOSE LOWERING DRUGS [Suspect]
     Indication: TYPE 2 DIABETES MELLITUS
     Route: 048
     Dates: start: 20081227, end: 20091029
  3. MICARDIS [Concomitant]
     Indication: HYPERTENSION
     Route: 048
     Dates: start: 20080715
  4. HAKUYAKUKANZOTO [Concomitant]
     Route: 048
     Dates: start: 20080909
  5. URSO 250 [Concomitant]
     Route: 048
     Dates: start: 20080310
  6. YAKUBAN [Concomitant]
     Dates: start: 20080422
  7. PLAVIX [Concomitant]
     Route: 048
     Dates: start: 20071206
  8. TATHION [Concomitant]
     Dates: start: 20080908
  9. SOFT-SANTEAR [Concomitant]
     Dates: start: 20090107

REACTIONS (1)
  - MALIGNANT NEOPLASM OF RENAL PELVIS [None]
